FAERS Safety Report 24871352 (Version 1)
Quarter: 2025Q1

REPORT INFORMATION
  Report Type: Spontaneous
  Country: US (occurrence: US)
  Receive Date: 20250122
  Receipt Date: 20250122
  Transmission Date: 20250408
  Serious: Yes (Death, Hospitalization, Other)
  Sender: ORGANON
  Company Number: US-ORGANON-O2501USA002162

PATIENT
  Age: 87 Year
  Sex: Male

DRUGS (5)
  1. REMERON [Suspect]
     Active Substance: MIRTAZAPINE
     Route: 048
  2. BUPROPION [Suspect]
     Active Substance: BUPROPION
     Route: 048
  3. AMIODARONE [Suspect]
     Active Substance: AMIODARONE
     Route: 048
  4. APIXABAN [Suspect]
     Active Substance: APIXABAN
     Route: 048
  5. LEVOTHYROXINE [Suspect]
     Active Substance: LEVOTHYROXINE
     Route: 048

REACTIONS (1)
  - Suspected suicide [Fatal]
